FAERS Safety Report 14536145 (Version 2)
Quarter: 2018Q1

REPORT INFORMATION
  Report Type: Spontaneous
  Country: US (occurrence: US)
  Receive Date: 20180215
  Receipt Date: 20180220
  Transmission Date: 20180509
  Serious: Yes (Other)
  Sender: FDA-Public Use
  Company Number: US-PFIZER INC-2018063274

PATIENT
  Age: 63 Year
  Sex: Female

DRUGS (3)
  1. VENLAFAXINE HCL [Suspect]
     Active Substance: VENLAFAXINE HYDROCHLORIDE
     Dosage: 300 MG, DAILY
     Dates: end: 201501
  2. VENLAFAXINE HCL [Suspect]
     Active Substance: VENLAFAXINE HYDROCHLORIDE
     Dosage: 75 MG, (SMALL DOSE) UNK
     Dates: start: 2011
  3. OMEPRAZOLE. [Concomitant]
     Active Substance: OMEPRAZOLE

REACTIONS (20)
  - Syncope [Recovered/Resolved]
  - Somnolence [Unknown]
  - Paraesthesia [Unknown]
  - Vertigo [Unknown]
  - Loss of consciousness [Unknown]
  - Overdose [Unknown]
  - Product use issue [Unknown]
  - Seizure [Unknown]
  - Blood pressure decreased [Unknown]
  - Eye contusion [Unknown]
  - Arrhythmia [Unknown]
  - Sleep disorder [Unknown]
  - Urinary incontinence [Unknown]
  - Weight increased [Unknown]
  - Memory impairment [Unknown]
  - Myocardial ischaemia [Unknown]
  - Diarrhoea [Unknown]
  - Tachycardia [Unknown]
  - Injury [Unknown]
  - Withdrawal syndrome [Unknown]
